FAERS Safety Report 10549062 (Version 2)
Quarter: 2014Q4

REPORT INFORMATION
  Report Type: Spontaneous
  Country: US (occurrence: US)
  Receive Date: 20141028
  Receipt Date: 20141202
  Transmission Date: 20150529
  Serious: Yes (Hospitalization)
  Sender: FDA-Public Use
  Company Number: US-BAYER-2014-157146

PATIENT
  Age: 29 Year
  Sex: Female
  Weight: 74.83 kg

DRUGS (3)
  1. MIDOL IB [Concomitant]
  2. IBUPROFENE [Concomitant]
     Active Substance: IBUPROFEN
  3. MIRENA [Suspect]
     Active Substance: LEVONORGESTREL
     Indication: CONTRACEPTION
     Dosage: 20 MCG/24HR, CONT
     Route: 015
     Dates: start: 20101019, end: 20130107

REACTIONS (8)
  - Injury [None]
  - Pain [None]
  - Device dislocation [None]
  - Depression [None]
  - Device issue [None]
  - Anxiety [None]
  - Uterine perforation [None]
  - Emotional distress [None]

NARRATIVE: CASE EVENT DATE: 201011
